FAERS Safety Report 4330677-0 (Version None)
Quarter: 2004Q2

REPORT INFORMATION
  Report Type: 
  Country: None (occurrence: None)
  Receive Date: 20040402
  Receipt Date: 20030618
  Transmission Date: 20050107
  Serious: Yes (Hospitalization)
  Sender: FDA-Public Use
  Company Number: FR-BRISTOL-MYERS SQUIBB COMPANY-12305173

PATIENT
  Age: 52 Year
  Sex: Male

DRUGS (4)
  1. NIFLURIL [Concomitant]
     Indication: PAIN IN EXTREMITY
     Dates: end: 20030518
  2. ELISOR [Suspect]
     Route: 048
     Dates: end: 20030524
  3. COZAAR [Suspect]
     Indication: HYPERTENSION
     Route: 048
     Dates: end: 20030524
  4. CORDARONE [Concomitant]

REACTIONS (3)
  - ANURIA [None]
  - RENAL FAILURE ACUTE [None]
  - RHABDOMYOLYSIS [None]
